FAERS Safety Report 7412159-2 (Version None)
Quarter: 2011Q2

REPORT INFORMATION
  Report Type: 
  Country: None (occurrence: None)
  Receive Date: 20110408
  Receipt Date: 20110408
  Transmission Date: 20111010
  Serious: Yes (Other)
  Sender: FDA-Public Use
  Company Number: None

PATIENT
  Age: 78 Year
  Sex: Male
  Weight: 58.9676 kg

DRUGS (1)
  1. VIT D2 1.25MG -50,OOOUNIT- PLIVA INC [Suspect]
     Indication: VITAMIN D DECREASED
     Dosage: 1 CAPSULE TWICE WEEKLY / 4 WKS PO
     Route: 048
     Dates: start: 20110219, end: 20110219

REACTIONS (5)
  - NAUSEA [None]
  - BARRETT'S OESOPHAGUS [None]
  - GASTRITIS [None]
  - WEIGHT DECREASED [None]
  - HEPATIC STEATOSIS [None]
